FAERS Safety Report 16416734 (Version 1)
Quarter: 2019Q2

REPORT INFORMATION
  Report Type: Spontaneous
  Country: CA (occurrence: CA)
  Receive Date: 20190611
  Receipt Date: 20190611
  Transmission Date: 20190711
  Serious: Yes (Other)
  Sender: FDA-Public Use
  Company Number: CA-GLAXOSMITHKLINE-CA2019GSK102651

PATIENT
  Sex: Female

DRUGS (4)
  1. BENLYSTA [Suspect]
     Active Substance: BELIMUMAB
     Dosage: 640 MG, UNK
  2. BENLYSTA [Suspect]
     Active Substance: BELIMUMAB
     Indication: PRODUCT USED FOR UNKNOWN INDICATION
     Dosage: 640 MG, UNK
  3. BENLYSTA [Suspect]
     Active Substance: BELIMUMAB
     Dosage: 640 MG, UNK
  4. PREDNISONE. [Suspect]
     Active Substance: PREDNISONE
     Indication: PRODUCT USED FOR UNKNOWN INDICATION
     Dosage: UNK

REACTIONS (2)
  - Systemic lupus erythematosus [Unknown]
  - Pain [Unknown]
